FAERS Safety Report 6385773-3 (Version None)
Quarter: 2009Q4

REPORT INFORMATION
  Report Type: 
  Country: None (occurrence: None)
  Receive Date: 20091002
  Receipt Date: 20081229
  Transmission Date: 20100525
  Serious: Yes (Hospitalization)
  Sender: FDA-Public Use
  Company Number: US-ASTRAZENECA-2008UW20628

PATIENT
  Age: 73 Year
  Sex: Female
  Weight: 77.1 kg

DRUGS (4)
  1. ARIMIDEX [Suspect]
     Indication: BREAST CANCER FEMALE
     Route: 048
     Dates: start: 20060501
  2. SYNTHROID [Concomitant]
  3. NASCOBAL [Concomitant]
     Route: 045
  4. CRESTOR [Concomitant]

REACTIONS (5)
  - ALOPECIA [None]
  - BARRETT'S OESOPHAGUS [None]
  - DIZZINESS [None]
  - HAEMOGLOBIN DECREASED [None]
  - NASOPHARYNGITIS [None]
